FAERS Safety Report 9982439 (Version 1)
Quarter: 2014Q1

REPORT INFORMATION
  Report Type: Report from Study
  Country: US (occurrence: US)
  Receive Date: 20140307
  Receipt Date: 20140307
  Transmission Date: 20141002
  Serious: No
  Sender: FDA-Public Use
  Company Number: US-ABBVIE-13P-163-1180228-00

PATIENT
  Age: 55 Year
  Sex: Male
  Weight: 74.91 kg

DRUGS (3)
  1. HUMIRA [Suspect]
     Indication: PSORIASIS
     Route: 058
     Dates: start: 2009
  2. IBUPROFEN [Concomitant]
     Indication: BACK PAIN
  3. HCTZ [Concomitant]
     Indication: HYPERTENSION

REACTIONS (4)
  - Oropharyngeal pain [Not Recovered/Not Resolved]
  - Feeling hot [Not Recovered/Not Resolved]
  - Nasopharyngitis [Not Recovered/Not Resolved]
  - Nausea [Not Recovered/Not Resolved]
